FAERS Safety Report 11124094 (Version 4)
Quarter: 2016Q2

REPORT INFORMATION
  Report Type: Spontaneous
  Country: US (occurrence: US)
  Receive Date: 20150520
  Receipt Date: 20160511
  Transmission Date: 20160815
  Serious: Yes (Other)
  Sender: FDA-Public Use
  Company Number: US-ELI_LILLY_AND_COMPANY-US201505000919

PATIENT
  Age: 63 Year
  Sex: Female

DRUGS (4)
  1. FORTEO [Suspect]
     Active Substance: TERIPARATIDE
     Dosage: UNK, UNK, QOD
     Route: 065
     Dates: start: 201407, end: 201503
  2. FORTEO [Suspect]
     Active Substance: TERIPARATIDE
     Indication: OSTEOPOROSIS
     Dosage: UNK UNK, QD
     Route: 065
     Dates: start: 20131228
  3. FORTEO [Suspect]
     Active Substance: TERIPARATIDE
     Dosage: UNK, QD
     Route: 065
     Dates: start: 201503
  4. FORTEO [Suspect]
     Active Substance: TERIPARATIDE
     Dosage: UNK, QD
     Route: 065
     Dates: end: 20150702

REACTIONS (15)
  - Pancreatitis [Recovered/Resolved]
  - Migraine [Unknown]
  - Spinal fracture [Recovering/Resolving]
  - Nephrolithiasis [Not Recovered/Not Resolved]
  - Renal disorder [Unknown]
  - Sinus headache [Recovered/Resolved]
  - Urine calcium increased [Unknown]
  - Hepatic lesion [Unknown]
  - Wrist fracture [Unknown]
  - Cholelithiasis [Unknown]
  - Headache [Unknown]
  - Fall [Recovering/Resolving]
  - Renal impairment [Not Recovered/Not Resolved]
  - Blood calcium increased [Unknown]
  - Inappropriate schedule of drug administration [Unknown]

NARRATIVE: CASE EVENT DATE: 201403
